FAERS Safety Report 23728748 (Version 1)
Quarter: 2024Q2

REPORT INFORMATION
  Report Type: Spontaneous
  Country: CN (occurrence: CN)
  Receive Date: 20240410
  Receipt Date: 20240410
  Transmission Date: 20240716
  Serious: Yes (Life-Threatening)
  Sender: FDA-Public Use
  Company Number: CN-MYLANLABS-2024M1031993

PATIENT
  Age: 73 Year
  Sex: Female
  Weight: 51 kg

DRUGS (4)
  1. NITROSTAT [Suspect]
     Active Substance: NITROGLYCERIN
     Indication: Hypertension
     Dosage: 0.6 MILLIGRAM, QD
     Route: 060
     Dates: start: 20240404, end: 20240404
  2. NITROSTAT [Suspect]
     Active Substance: NITROGLYCERIN
     Indication: Palpitations
  3. SODIUM CHLORIDE [Concomitant]
     Active Substance: SODIUM CHLORIDE
     Indication: Dizziness
     Dosage: 100 MILLILITER, QD
     Route: 042
     Dates: start: 20240404, end: 20240404
  4. BETAHISTINE HYDROCHLORIDE [Concomitant]
     Active Substance: BETAHISTINE HYDROCHLORIDE
     Indication: Dizziness
     Dosage: 2 MILLILITER, QD
     Route: 042
     Dates: start: 20240404, end: 20240404

REACTIONS (3)
  - Tremor [Recovering/Resolving]
  - Panic reaction [Recovering/Resolving]
  - Chest discomfort [Recovering/Resolving]

NARRATIVE: CASE EVENT DATE: 20240404
